FAERS Safety Report 5512991-6 (Version None)
Quarter: 2007Q4

REPORT INFORMATION
  Report Type: 
  Country: None (occurrence: None)
  Receive Date: 20071112
  Receipt Date: 20071107
  Transmission Date: 20080405
  Serious: Yes (Hospitalization)
  Sender: FDA-Public Use
  Company Number: US-ASTRAZENECA-2007UW25885

PATIENT
  Age: 50 Year
  Sex: Female
  Weight: 96.6 kg

DRUGS (4)
  1. NEXIUM [Suspect]
     Route: 048
  2. GLIPIZIDE [Concomitant]
  3. ACTOS [Concomitant]
  4. METFORMIN HCL [Concomitant]

REACTIONS (2)
  - ABDOMINAL PAIN UPPER [None]
  - CARDIOMYOPATHY [None]
